FAERS Safety Report 10519700 (Version 2)
Quarter: 2014Q4

REPORT INFORMATION
  Report Type: Spontaneous
  Country: NL (occurrence: NL)
  Receive Date: 20141015
  Receipt Date: 20141026
  Transmission Date: 20150528
  Serious: Yes (Death)
  Sender: FDA-Public Use
  Company Number: NL-IPSEN BIOPHARMACEUTICALS, INC.-2014-5480

PATIENT
  Age: 63 Year
  Sex: Female

DRUGS (2)
  1. SOMATULINE AUTOGEL [Suspect]
     Active Substance: LANREOTIDE ACETATE
     Indication: PRODUCT USE ISSUE
  2. SOMATULINE AUTOGEL [Suspect]
     Active Substance: LANREOTIDE ACETATE
     Indication: PANCREATIC OPERATION
     Dosage: 120 MG
     Route: 058
     Dates: start: 20140923, end: 20140923

REACTIONS (1)
  - Death [Fatal]

NARRATIVE: CASE EVENT DATE: 20141002
